FAERS Safety Report 11492990 (Version 1)
Quarter: 2015Q3

REPORT INFORMATION
  Report Type: Spontaneous
  Country: US (occurrence: None)
  Receive Date: 20150910
  Receipt Date: 20150910
  Transmission Date: 20151125
  Serious: No
  Sender: FDA-Public Use
  Company Number: None

PATIENT
  Sex: Male

DRUGS (1)
  1. NEXAVAR [Suspect]
     Active Substance: SORAFENIB
     Dosage: 400MG  BID  PO
     Route: 048
     Dates: start: 20150812

REACTIONS (6)
  - Night sweats [None]
  - Alopecia [None]
  - Abdominal discomfort [None]
  - Swelling [None]
  - Erythema [None]
  - Pruritus [None]
